FAERS Safety Report 18079647 (Version 2)
Quarter: 2020Q3

REPORT INFORMATION
  Report Type: Spontaneous
  Country: US (occurrence: US)
  Receive Date: 20200728
  Receipt Date: 20200924
  Transmission Date: 20201103
  Serious: Yes (Other)
  Sender: FDA-Public Use
  Company Number: US-LEXICON PHARMACEUTICALS, INC-20-1606-00590

PATIENT
  Age: 70 Year
  Sex: Female

DRUGS (4)
  1. STEROID [Suspect]
     Active Substance: UNSPECIFIED INGREDIENT
  2. XERMELO [Suspect]
     Active Substance: TELOTRISTAT ETHYL
     Indication: CARCINOID TUMOUR OF THE DUODENUM
     Dates: start: 20181210
  3. XERMELO [Suspect]
     Active Substance: TELOTRISTAT ETHYL
     Indication: CARCINOID SYNDROME
  4. SOMATULINE [Concomitant]
     Active Substance: LANREOTIDE ACETATE

REACTIONS (7)
  - Proctalgia [Unknown]
  - Joint swelling [Unknown]
  - Abdominal pain upper [Unknown]
  - Arthralgia [Unknown]
  - Blood glucose increased [Recovered/Resolved]
  - Visual impairment [Recovered/Resolved]
  - Constipation [Not Recovered/Not Resolved]
